FAERS Safety Report 4849948-4 (Version None)
Quarter: 2005Q4

REPORT INFORMATION
  Report Type: 
  Country: None (occurrence: None)
  Receive Date: 20051101
  Receipt Date: 20050811
  Transmission Date: 20060501
  Serious: Yes (Other)
  Sender: FDA-Public Use
  Company Number: 200511673BBE

PATIENT
  Age: 66 Year
  Sex: Female

DRUGS (2)
  1. GAMUNEX [Suspect]
     Indication: CRYOGLOBULINAEMIA
     Dosage: 10 ML, TOTAL DAILY, INTRAVENOUS
     Route: 042
     Dates: start: 20050311
  2. GAMUNEX [Suspect]
     Indication: WOUND
     Dosage: 10 ML, TOTAL DAILY, INTRAVENOUS
     Route: 042
     Dates: start: 20050311

REACTIONS (5)
  - CHILLS [None]
  - DYSPNOEA [None]
  - HYPERSENSITIVITY [None]
  - PALLOR [None]
  - RASH MACULAR [None]
